FAERS Safety Report 16868328 (Version 1)
Quarter: 2019Q3

REPORT INFORMATION
  Report Type: Spontaneous
  Country: CN (occurrence: CN)
  Receive Date: 20190930
  Receipt Date: 20190930
  Transmission Date: 20191005
  Serious: Yes (Other)
  Sender: FDA-Public Use
  Company Number: CN-PFIZER INC-2019415181

PATIENT
  Age: 18 Month
  Sex: Male
  Weight: 11 kg

DRUGS (1)
  1. CYTARABINE. [Suspect]
     Active Substance: CYTARABINE
     Indication: ACUTE LYMPHOCYTIC LEUKAEMIA
     Dosage: 0.037 G, 1X/DAY
     Dates: start: 20190919, end: 20190922

REACTIONS (3)
  - Chills [Recovered/Resolved]
  - Pyrexia [Recovered/Resolved]
  - Skin discolouration [Recovered/Resolved]

NARRATIVE: CASE EVENT DATE: 20190919
